FAERS Safety Report 6699088-7 (Version None)
Quarter: 2010Q2

REPORT INFORMATION
  Report Type: 
  Country: None (occurrence: None)
  Receive Date: 20100423
  Receipt Date: 20100413
  Transmission Date: 20101027
  Serious: Yes (Hospitalization, Other)
  Sender: FDA-Public Use
  Company Number: 2010SP013305

PATIENT
  Age: 44 Year
  Sex: Male
  Weight: 79 kg

DRUGS (6)
  1. REMERON [Suspect]
     Indication: DEPRESSION
     Dosage: ; PO
     Route: 048
     Dates: start: 20091204, end: 20100119
  2. REMERON [Suspect]
     Indication: DISEASE RECURRENCE
     Dosage: ; PO
     Route: 048
     Dates: start: 20091204, end: 20100119
  3. RISPERDAL [Suspect]
     Dosage: 0.5 MG; QD; PO
     Route: 048
     Dates: start: 20091216, end: 20100123
  4. VENLAFAXINE HCL [Concomitant]
  5. TRAVOR EXPIDET [Concomitant]
  6. LORAZEPAM [Concomitant]

REACTIONS (2)
  - HEPATIC STEATOSIS [None]
  - HEPATITIS ACUTE [None]
